FAERS Safety Report 7933431-3 (Version None)
Quarter: 2011Q4

REPORT INFORMATION
  Report Type: 
  Country: None (occurrence: None)
  Receive Date: 20111122
  Receipt Date: 20111115
  Transmission Date: 20120403
  Serious: Yes (Death, Life-Threatening, Hospitalization)
  Sender: FDA-Public Use
  Company Number: JP-AMGEN-JPNCT2011057817

PATIENT
  Age: 69 Year
  Sex: Female
  Weight: 70 kg

DRUGS (2)
  1. DENOSUMAB [Suspect]
     Indication: OSTEOPOROSIS
     Dosage: 60 MG, Q6MO
     Route: 058
     Dates: start: 20110408, end: 20111012
  2. CALCIUM CARBONATE [Concomitant]
     Route: 048
     Dates: start: 20080312, end: 20111020

REACTIONS (6)
  - CAROTID ARTERY ANEURYSM [None]
  - SYNCOPE [None]
  - SUBARACHNOID HAEMORRHAGE [None]
  - SKULL FRACTURE [None]
  - BRAIN CONTUSION [None]
  - FALL [None]
